FAERS Safety Report 19484219 (Version 4)
Quarter: 2025Q4

REPORT INFORMATION
  Report Type: Spontaneous
  Country: US (occurrence: US)
  Receive Date: 20210701
  Receipt Date: 20251204
  Transmission Date: 20260118
  Serious: Yes (Other)
  Sender: PFIZER
  Company Number: US-PFIZER INC-2020285467

PATIENT
  Age: 65 Year
  Sex: Female

DRUGS (2)
  1. IBRANCE [Suspect]
     Active Substance: PALBOCICLIB
     Indication: Breast cancer stage IV
     Dosage: 1 TABLET DAILY FOR 21 DAY, 7 DAYS OFF, 28 DAY CYCLE
     Route: 048
  2. IBRANCE [Suspect]
     Active Substance: PALBOCICLIB
     Dosage: 125 MG

REACTIONS (13)
  - Drug abuse [Unknown]
  - Malignant neoplasm progression [Unknown]
  - Breast cancer stage IV [Unknown]
  - Metastasis [Unknown]
  - Product dose omission in error [Unknown]
  - Back disorder [Unknown]
  - Poor quality sleep [Unknown]
  - Psychomotor hyperactivity [Unknown]
  - Gingival pain [Unknown]
  - Fatigue [Unknown]
  - Anger [Unknown]
  - Eye disorder [Unknown]
  - Vision blurred [Unknown]
